FAERS Safety Report 6028460-3 (Version None)
Quarter: 2009Q1

REPORT INFORMATION
  Report Type: 
  Country: None (occurrence: None)
  Receive Date: 20090106
  Receipt Date: 20090106
  Transmission Date: 20090719
  Serious: Yes (Other)
  Sender: FDA-Public Use
  Company Number: US-PFIZER INC-2008094032

PATIENT
  Sex: Male
  Weight: 95 kg

DRUGS (7)
  1. CELEBREX [Suspect]
     Route: 048
     Dates: end: 20070101
  2. BENICAR [Concomitant]
  3. VALSARTAN [Concomitant]
  4. AMLODIPINE [Concomitant]
  5. ALLOPURINOL [Concomitant]
  6. KLOR-CON [Concomitant]
  7. OMEPRAZOLE [Concomitant]

REACTIONS (3)
  - CARDIOMYOPATHY [None]
  - CHEST DISCOMFORT [None]
  - DYSPNOEA [None]
